FAERS Safety Report 23600040 (Version 1)
Quarter: 2024Q1

REPORT INFORMATION
  Report Type: Spontaneous
  Country: GB (occurrence: None)
  Receive Date: 20240306
  Receipt Date: 20240306
  Transmission Date: 20240410
  Serious: Yes (Other)
  Sender: FDA-Public Use
  Company Number: 2024A048623

PATIENT
  Age: 55 Year
  Sex: Male
  Weight: 76 kg

DRUGS (11)
  1. DAPAGLIFLOZIN [Suspect]
     Active Substance: DAPAGLIFLOZIN
     Dosage: FOR TREATING HEART F...
     Dates: start: 20240130
  2. BISOPROLOL [Concomitant]
     Active Substance: BISOPROLOL\BISOPROLOL FUMARATE
     Dates: start: 20231020
  3. BUMETANIDE [Concomitant]
     Active Substance: BUMETANIDE
     Dosage: EACH MORNING
     Dates: start: 20230919
  4. DIGOXIN [Concomitant]
     Active Substance: DIGOXIN
     Dosage: TO HELP CONTROL HEART ...
     Dates: start: 20230919
  5. EDOXABAN [Concomitant]
     Active Substance: EDOXABAN
     Indication: Thrombosis
     Dates: start: 20230919
  6. ACLIDINIUM BROMIDE [Concomitant]
     Active Substance: ACLIDINIUM BROMIDE
     Indication: Dyspnoea
     Route: 055
     Dates: start: 20231006
  7. LANSOPRAZOLE [Concomitant]
     Active Substance: LANSOPRAZOLE
     Indication: Dyspepsia
     Dates: start: 20230919
  8. LUFORBEC [Concomitant]
     Dosage: USE AS DIRECTED
     Route: 055
     Dates: start: 20231006
  9. SACUBITRIL [Concomitant]
     Active Substance: SACUBITRIL
     Indication: Cardiac failure
     Dates: start: 20231117
  10. SPIRONOLACTONE [Concomitant]
     Active Substance: SPIRONOLACTONE
     Dates: start: 20230919
  11. VENTOLIN [Concomitant]
     Active Substance: ALBUTEROL SULFATE
     Dosage: AS NEEDED
     Route: 055
     Dates: start: 20230919

REACTIONS (2)
  - Pain in extremity [Recovering/Resolving]
  - Dyspnoea [Recovering/Resolving]
